FAERS Safety Report 6362008-9 (Version None)
Quarter: 2009Q3

REPORT INFORMATION
  Report Type: 
  Country: None (occurrence: None)
  Receive Date: 20090918
  Receipt Date: 20090908
  Transmission Date: 20100115
  Serious: Yes (Hospitalization, Disabling)
  Sender: FDA-Public Use
  Company Number: US-WYE-H02362608

PATIENT
  Sex: Female
  Weight: 108.96 kg

DRUGS (10)
  1. EFFEXOR [Suspect]
     Indication: DEPRESSION
  2. TYLENOL (CAPLET) [Concomitant]
     Dosage: AS NEEDED
  3. EFFEXOR XR [Suspect]
     Indication: DEPRESSION
  4. PSEUDOEPHEDRINE HYDROCHLORIDE [Concomitant]
  5. ZYPREXA [Concomitant]
     Dates: start: 20050223
  6. NASONEX [Concomitant]
     Indication: HYPERSENSITIVITY
     Dosage: 2 SQUIRTS EACH NOSTRIL EVERY DAY AS NEEDED
     Route: 045
  7. LAMISIL [Concomitant]
  8. GUAIFENESIN W/DEXTROMETHORPHAN [Concomitant]
  9. ADVIL [Concomitant]
     Dosage: AS NEEDED
  10. CLARINEX [Concomitant]
     Indication: HYPERSENSITIVITY
     Route: 048
     Dates: start: 20041013

REACTIONS (11)
  - ANAEMIA [None]
  - CHORIORETINOPATHY [None]
  - DRUG HYPERSENSITIVITY [None]
  - GRANULOMA [None]
  - HYPERTENSION [None]
  - HYPOVOLAEMIA [None]
  - LACUNAR INFARCTION [None]
  - RENAL FAILURE ACUTE [None]
  - RENAL FAILURE CHRONIC [None]
  - TRANSIENT ISCHAEMIC ATTACK [None]
  - TUBULOINTERSTITIAL NEPHRITIS [None]
